FAERS Safety Report 7343269-6 (Version None)
Quarter: 2011Q1

REPORT INFORMATION
  Report Type: 
  Country: None (occurrence: None)
  Receive Date: 20110308
  Receipt Date: 20110308
  Transmission Date: 20110831
  Serious: Yes (Hospitalization)
  Sender: FDA-Public Use
  Company Number: None

PATIENT
  Age: 71 Year
  Sex: Male

DRUGS (2)
  1. SPIRONOLACTONE [Suspect]
     Indication: CARDIAC FAILURE CONGESTIVE
     Dosage: 25 MG AM PO
     Route: 048
     Dates: start: 20081202, end: 20101217
  2. VALSARTAN [Suspect]
     Indication: HYPERTENSION
     Dosage: 80 MG AM PO
     Route: 048
     Dates: start: 20090609, end: 20101223

REACTIONS (4)
  - DEHYDRATION [None]
  - HYPERKALAEMIA [None]
  - DYSPNOEA [None]
  - BLOOD UREA NITROGEN/CREATININE RATIO INCREASED [None]
